FAERS Safety Report 6453443-9 (Version None)
Quarter: 2009Q4

REPORT INFORMATION
  Report Type: 
  Country: None (occurrence: None)
  Receive Date: 20091124
  Receipt Date: 20091116
  Transmission Date: 20100525
  Serious: Yes (Hospitalization)
  Sender: FDA-Public Use
  Company Number: CH-ROCHE-669214

PATIENT
  Age: 40 Year
  Sex: Male

DRUGS (4)
  1. PEGASYS [Suspect]
     Indication: HEPATITIS C
     Route: 051
     Dates: start: 20090121
  2. PEGASYS [Suspect]
     Dosage: DOSE REDUCED
     Route: 051
  3. COPEGUS [Suspect]
     Indication: HEPATITIS C
     Dosage: 200 MG 3-0-3
     Route: 048
     Dates: start: 20090121
  4. COPEGUS [Suspect]
     Dosage: 200 MG 3-0-2; DOSE REDUCED
     Route: 048

REACTIONS (3)
  - ABSCESS [None]
  - APPENDICITIS [None]
  - NEUTROPENIA [None]
